FAERS Safety Report 4713564-5 (Version None)
Quarter: 2005Q3

REPORT INFORMATION
  Report Type: 
  Country: None (occurrence: None)
  Receive Date: 20050711
  Receipt Date: 20050629
  Transmission Date: 20060218
  Serious: Yes (Hospitalization)
  Sender: FDA-Public Use
  Company Number: 2005JP001369

PATIENT
  Age: 87 Year
  Sex: Male

DRUGS (2)
  1. FUNGUARD(MICAFUNGIN) INJECTION [Suspect]
     Indication: CANDIDIASIS
     Dosage: 100.00MG IV DRIP
     Route: 041
     Dates: start: 20050615
  2. SULPERAZON(CEFOPERAZONE SODIUM, SULBACTAM SODIUM) INJECTION [Suspect]
     Dosage: 2.00 G IV DRIP
     Route: 041

REACTIONS (1)
  - CLOSTRIDIUM COLITIS [None]
